FAERS Safety Report 6130590-2 (Version None)
Quarter: 2009Q1

REPORT INFORMATION
  Report Type: 
  Country: None (occurrence: None)
  Receive Date: 20090325
  Receipt Date: 20090313
  Transmission Date: 20090719
  Serious: Yes (Death, Life-Threatening, Hospitalization, Disabling)
  Sender: FDA-Public Use
  Company Number: GB-RANBAXY-2009RR-22741

PATIENT
  Sex: Female
  Weight: 45 kg

DRUGS (12)
  1. SPIRONOLACTONE [Suspect]
     Indication: DRUG USE FOR UNKNOWN INDICATION
     Dosage: 3 MG, QD
     Route: 065
  2. FRUSEMIDE [Suspect]
     Dosage: 1 MG, QD
     Route: 065
  3. ZANTAC [Suspect]
     Indication: HYPERCHLORHYDRIA
     Dosage: UNK
     Route: 042
     Dates: start: 20000608, end: 20000612
  4. ZANTAC [Suspect]
     Dosage: 0.2 ML, UNK
     Route: 065
     Dates: start: 20000801
  5. ZANTAC [Suspect]
     Dosage: 150 MG, BID
     Dates: start: 20000926, end: 20000930
  6. ZANTAC [Suspect]
     Dosage: 0.2 MG, TID
  7. ZANTAC [Suspect]
     Dosage: 30 MG, TID
     Dates: start: 20001001, end: 20001004
  8. ABDEC [Concomitant]
  9. POTASSIUM CHLORIDE [Concomitant]
  10. SALINE BUFFERED [Concomitant]
     Dosage: UNK
     Dates: start: 20000613
  11. ACETAMINOPHEN [Concomitant]
  12. DEXTROSE SALINE [Concomitant]
     Route: 042

REACTIONS (22)
  - AGITATION [None]
  - BODY TEMPERATURE INCREASED [None]
  - BREATH ODOUR [None]
  - CARDIAC ARREST [None]
  - CARDIOMEGALY [None]
  - CRYING [None]
  - CYANOSIS [None]
  - DIARRHOEA [None]
  - DRUG ADMINISTRATION ERROR [None]
  - DRUG TOXICITY [None]
  - DYSPNOEA [None]
  - EMOTIONAL DISTRESS [None]
  - FAECES DISCOLOURED [None]
  - INTERCOSTAL RETRACTION [None]
  - LUNG INJURY [None]
  - OVERDOSE [None]
  - OXYGEN SATURATION DECREASED [None]
  - PRODUCTIVE COUGH [None]
  - PYREXIA [None]
  - RESPIRATORY DISTRESS [None]
  - RESTLESSNESS [None]
  - WHEEZING [None]
